FAERS Safety Report 9236084 (Version 1)
Quarter: 2013Q2

REPORT INFORMATION
  Report Type: Spontaneous
  Country: US (occurrence: US)
  Receive Date: 20130417
  Receipt Date: 20130417
  Transmission Date: 20140414
  Serious: No
  Sender: FDA-Public Use
  Company Number: US-ABBOTT-12P-163-0970438-00

PATIENT
  Sex: 0

DRUGS (3)
  1. ZEMPLAR [Suspect]
     Indication: HYPERPARATHYROIDISM
     Dates: start: 201207, end: 201208
  2. UNKNOWN ANTI-HYPERTENSIVE MEDICATION [Concomitant]
     Indication: HYPERTENSION
     Dates: end: 201208
  3. UNKNOWN ANTI-HYPERTENSIVE MEDICATION [Concomitant]
     Indication: HYPERTENSION
     Dates: end: 201208

REACTIONS (1)
  - Blood pressure decreased [Recovered/Resolved]
